FAERS Safety Report 9010743 (Version 1)
Quarter: 2013Q1

REPORT INFORMATION
  Report Type: Spontaneous
  Country: LK (occurrence: ES)
  Receive Date: 20130109
  Receipt Date: 20130109
  Transmission Date: 20140127
  Serious: Yes (Hospitalization)
  Sender: FDA-Public Use
  Company Number: ES-PFIZER INC-2012324786

PATIENT
  Age: 23 Year
  Sex: Female

DRUGS (3)
  1. LIDOCAINE HCL [Suspect]
     Indication: LOCAL ANAESTHESIA
     Dosage: 36 MG, UNK
     Route: 051
  2. ADRENALINE [Suspect]
     Indication: LOCAL ANAESTHESIA
     Dosage: 36 UG, UNK
     Route: 051
  3. NORADRENALINE [Suspect]
     Indication: LOCAL ANAESTHESIA
     Dosage: 26 UG, UNK
     Route: 051

REACTIONS (1)
  - Arteriospasm coronary [Recovered/Resolved]
